FAERS Safety Report 7230007-0 (Version None)
Quarter: 2011Q1

REPORT INFORMATION
  Report Type: 
  Country: None (occurrence: None)
  Receive Date: 20110117
  Receipt Date: 20110112
  Transmission Date: 20110831
  Serious: Yes (Other)
  Sender: FDA-Public Use
  Company Number: PHHY2010ES87814

PATIENT
  Age: 18 Year
  Sex: Female

DRUGS (3)
  1. ASPIRIN [Suspect]
     Dosage: 750 MG, UNK
  2. PARACETAMOL [Suspect]
     Dosage: 1 G,TWICE
  3. IBUPROFEN [Suspect]
     Dosage: 600 MG, UNK

REACTIONS (11)
  - RHINORRHOEA [None]
  - POLYP [None]
  - NASAL CONGESTION [None]
  - SINUSITIS [None]
  - HEADACHE [None]
  - UPPER AIRWAY OBSTRUCTION [None]
  - BRONCHOSPASM [None]
  - NASOPHARYNGITIS [None]
  - ANALGESIC ASTHMA SYNDROME [None]
  - PULMONARY FUNCTION CHALLENGE TEST ABNORMAL [None]
  - HYPOSMIA [None]
